FAERS Safety Report 12247038 (Version 3)
Quarter: 2016Q2

REPORT INFORMATION
  Report Type: Report from Study
  Country: BE (occurrence: BE)
  Receive Date: 20160407
  Receipt Date: 20160503
  Transmission Date: 20160815
  Serious: Yes (Death, Hospitalization, Other)
  Sender: FDA-Public Use
  Company Number: BE-BAYER-2016-030939

PATIENT
  Sex: Male

DRUGS (5)
  1. NEXAVAR [Suspect]
     Active Substance: SORAFENIB
     Indication: HEPATOCELLULAR CARCINOMA
     Dosage: DAILY DOSE 800 MG
     Route: 048
     Dates: start: 20160115, end: 20160309
  2. NEXAVAR [Suspect]
     Active Substance: SORAFENIB
     Indication: METASTASES TO LUNG
     Dosage: 400 MG, QD
     Route: 048
     Dates: start: 20160318, end: 20160325
  3. MEDROL [Concomitant]
     Active Substance: METHYLPREDNISOLONE
     Dosage: 32 MG, UNK
  4. ALDACTONE A [Concomitant]
     Active Substance: SPIRONOLACTONE
     Dosage: 100 MG, UNK
  5. LASIX [Concomitant]
     Active Substance: FUROSEMIDE
     Dosage: 40 MG, UNK

REACTIONS (22)
  - Diarrhoea [None]
  - Abdominal pain [None]
  - Hypertension [None]
  - Hypertension [None]
  - Somnolence [Unknown]
  - Constipation [None]
  - General physical health deterioration [Fatal]
  - Dyspnoea exertional [None]
  - Constipation [Recovered/Resolved]
  - Hepatocellular carcinoma [Fatal]
  - Hyperbilirubinaemia [None]
  - Fatigue [Not Recovered/Not Resolved]
  - Pruritus [None]
  - Dyspnoea [Not Recovered/Not Resolved]
  - Rash [Not Recovered/Not Resolved]
  - Hypertension [None]
  - Jaundice [Not Recovered/Not Resolved]
  - Limb discomfort [Not Recovered/Not Resolved]
  - Confusional state [None]
  - Confusional state [Unknown]
  - Weight increased [None]
  - Oedema peripheral [Not Recovered/Not Resolved]

NARRATIVE: CASE EVENT DATE: 2016
